FAERS Safety Report 18707224 (Version 1)
Quarter: 2021Q1

REPORT INFORMATION
  Report Type: Spontaneous
  Country: US (occurrence: US)
  Receive Date: 20210106
  Receipt Date: 20210106
  Transmission Date: 20210419
  Serious: No
  Sender: FDA-Public Use
  Company Number: US-OPTINOSE US, INC-2020OPT000699

PATIENT
  Age: 54 Year
  Sex: Male

DRUGS (2)
  1. XHANCE [Suspect]
     Active Substance: FLUTICASONE PROPIONATE
     Indication: CHRONIC SINUSITIS
     Route: 045
     Dates: start: 201902, end: 202008
  2. VIAGRA [Concomitant]
     Active Substance: SILDENAFIL CITRATE
     Indication: PRODUCT USED FOR UNKNOWN INDICATION
     Route: 065

REACTIONS (6)
  - Upper-airway cough syndrome [Unknown]
  - Product dispensing issue [Unknown]
  - Product dose omission issue [Unknown]
  - Prescribed underdose [Recovered/Resolved]
  - Product use in unapproved indication [Recovered/Resolved]
  - Sinus congestion [Unknown]

NARRATIVE: CASE EVENT DATE: 201902
